FAERS Safety Report 12892975 (Version 3)
Quarter: 2016Q4

REPORT INFORMATION
  Report Type: Spontaneous
  Country: US (occurrence: US)
  Receive Date: 20161028
  Receipt Date: 20161123
  Transmission Date: 20170207
  Serious: Yes (Life-Threatening, Hospitalization, Disabling, Other)
  Sender: FDA-Public Use
  Company Number: US-ASTELLAS-2016US042205

PATIENT
  Age: 8 Year
  Sex: Male

DRUGS (1)
  1. TACROLIMUS. [Suspect]
     Active Substance: TACROLIMUS
     Indication: HEART TRANSPLANT
     Dosage: UNK, UNKNOWN FREQ.
     Route: 065

REACTIONS (33)
  - Hyphaema [Unknown]
  - Subdural haemorrhage [Unknown]
  - Post transplant lymphoproliferative disorder [Unknown]
  - Upper respiratory tract infection [Unknown]
  - Periorbital oedema [Unknown]
  - Serotonin syndrome [Unknown]
  - Thrombotic microangiopathy [Not Recovered/Not Resolved]
  - Exophthalmos [Unknown]
  - Chorioretinal folds [Unknown]
  - Intracranial pressure increased [Unknown]
  - Clostridium difficile colitis [Unknown]
  - Sinusitis [Unknown]
  - Blindness [Not Recovered/Not Resolved]
  - Compartment syndrome [Unknown]
  - Retinal neovascularisation [Unknown]
  - Transverse sinus thrombosis [Unknown]
  - Ophthalmic vein thrombosis [Unknown]
  - Otitis media [Unknown]
  - Subarachnoid haemorrhage [Unknown]
  - Pelvic congestion [Unknown]
  - Pancytopenia [Unknown]
  - Retinal haemorrhage [Recovered/Resolved]
  - Intraocular pressure increased [Unknown]
  - Strabismus [Unknown]
  - Cerebral infarction [Unknown]
  - Gastroenteritis cryptosporidial [Unknown]
  - Cerebrovascular accident [Not Recovered/Not Resolved]
  - Cavernous sinus thrombosis [Not Recovered/Not Resolved]
  - Cataract [Unknown]
  - Cerebral haemorrhage [Unknown]
  - Internal carotid artery kinking [Unknown]
  - Papilloedema [Unknown]
  - Pyrexia [Unknown]
